FAERS Safety Report 10309995 (Version 2)
Quarter: 2015Q2

REPORT INFORMATION
  Report Type: Spontaneous
  Country: AU (occurrence: AU)
  Receive Date: 20140717
  Receipt Date: 20150501
  Transmission Date: 20150821
  Serious: Yes (Other)
  Sender: FDA-Public Use
  Company Number: AU-TEVA-494987ISR

PATIENT
  Age: 74 Year
  Sex: Male
  Weight: 79.2 kg

DRUGS (9)
  1. PROGOUT [Concomitant]
     Active Substance: ALLOPURINOL
  2. TARGIN [Concomitant]
     Active Substance: NALOXONE HYDROCHLORIDE\OXYCODONE HYDROCHLORIDE
  3. AZILECT [Suspect]
     Active Substance: RASAGILINE MESYLATE
     Indication: PARKINSON^S DISEASE
     Dosage: 1 MILLIGRAM DAILY;
     Dates: start: 20140318, end: 20140627
  4. CANACORT [Concomitant]
  5. PROPRANOLOL [Concomitant]
     Active Substance: PROPRANOLOL\PROPRANOLOL HYDROCHLORIDE
  6. PANADOL [Concomitant]
     Active Substance: ACETAMINOPHEN
  7. MOGADON [Concomitant]
     Active Substance: NITRAZEPAM
  8. PANADEINE FORTE (PARACETAMOL AND CODEIN) [Concomitant]
  9. KARVEA [Concomitant]
     Active Substance: IRBESARTAN

REACTIONS (1)
  - Acute leukaemia [Not Recovered/Not Resolved]

NARRATIVE: CASE EVENT DATE: 20140627
